FAERS Safety Report 18690311 (Version 4)
Quarter: 2021Q2

REPORT INFORMATION
  Report Type: Report from Study
  Country: None (occurrence: US)
  Receive Date: 20210101
  Receipt Date: 20210420
  Transmission Date: 20210717
  Serious: Yes (Other)
  Sender: FDA-Public Use
  Company Number: US-ABBVIE-20K-163-3712963-00

PATIENT
  Age: 88 Year
  Sex: Female
  Weight: 72.64 kg

DRUGS (1)
  1. VENCLEXTA [Suspect]
     Active Substance: VENETOCLAX
     Indication: CHRONIC LYMPHOCYTIC LEUKAEMIA
     Route: 048
     Dates: start: 202006, end: 202103

REACTIONS (5)
  - Breast cancer recurrent [Unknown]
  - Weight decreased [Unknown]
  - Blister [Not Recovered/Not Resolved]
  - Depression [Unknown]
  - Decreased appetite [Recovered/Resolved]

NARRATIVE: CASE EVENT DATE: 202009
